FAERS Safety Report 7332548-4 (Version None)
Quarter: 2011Q1

REPORT INFORMATION
  Report Type: 
  Country: None (occurrence: None)
  Receive Date: 20110304
  Receipt Date: 20110221
  Transmission Date: 20110831
  Serious: Yes (Hospitalization)
  Sender: FDA-Public Use
  Company Number: PHHY2011US14897

PATIENT
  Sex: Female
  Weight: 62 kg

DRUGS (7)
  1. MORPHINE [Concomitant]
  2. VITAMIN D [Concomitant]
  3. FOLIC ACID [Concomitant]
  4. OXYCODONE [Concomitant]
  5. EXJADE [Suspect]
     Dosage: 1000 MG, QD
     Route: 048
     Dates: start: 20090213
  6. NORVASC [Concomitant]
  7. LISINOPRIL [Concomitant]

REACTIONS (1)
  - SICKLE CELL ANAEMIA WITH CRISIS [None]
